FAERS Safety Report 5524701-7 (Version None)
Quarter: 2007Q4

REPORT INFORMATION
  Report Type: 
  Country: None (occurrence: None)
  Receive Date: 20071123
  Receipt Date: 20071115
  Transmission Date: 20080405
  Serious: Yes (Hospitalization)
  Sender: FDA-Public Use
  Company Number: PHBS2007LB17492

PATIENT
  Age: 64 Year
  Sex: Male
  Weight: 73 kg

DRUGS (3)
  1. ZOMETA [Suspect]
     Indication: MULTIPLE MYELOMA
     Dosage: 4 MG, MONTHLY
     Route: 042
     Dates: start: 20010901, end: 20060801
  2. ZOMETA [Suspect]
     Dates: start: 20070101, end: 20070101
  3. AREDIA [Suspect]
     Indication: MULTIPLE MYELOMA
     Dosage: 90 MG, UNK
     Dates: end: 20020101

REACTIONS (6)
  - BACTERIAL INFECTION [None]
  - BIOPSY BONE ABNORMAL [None]
  - BONE DEBRIDEMENT [None]
  - FUNGAL INFECTION [None]
  - OSTEOMYELITIS [None]
  - OSTEONECROSIS [None]
